FAERS Safety Report 13290956 (Version 2)
Quarter: 2017Q3

REPORT INFORMATION
  Report Type: Other
  Country: JP (occurrence: JP)
  Receive Date: 20170302
  Receipt Date: 20170712
  Transmission Date: 20171127
  Serious: Yes (Other)
  Sender: FDA-Public Use
  Company Number: JP-CELLTRION HEALTHCARE HUNGARY KFT-2016JP013945

PATIENT

DRUGS (11)
  1. INFLIXIMAB BS FOR I.V. INFUSION100 MG [NK] [Suspect]
     Active Substance: INFLIXIMAB
     Dosage: 200 MG/BODY/DAY
     Route: 042
     Dates: start: 20160614, end: 20160614
  2. INFLIXIMAB BS FOR I.V. INFUSION100 MG [NK] [Suspect]
     Active Substance: INFLIXIMAB
     Dosage: 300 MG/BODY/DAY
     Route: 042
     Dates: start: 20161101, end: 20161101
  3. PASTARON [Concomitant]
     Active Substance: UREA
     Indication: RHEUMATOID ARTHRITIS
     Dosage: 25 G, DAILY
     Dates: start: 20160628, end: 20160710
  4. INFLIXIMAB BS FOR I.V. INFUSION100 MG [NK] [Suspect]
     Active Substance: INFLIXIMAB
     Indication: RHEUMATOID ARTHRITIS
     Dosage: 200 MG/BODY/DAY
     Route: 042
     Dates: start: 20160601, end: 20160601
  5. INFLIXIMAB BS FOR I.V. INFUSION100 MG [NK] [Suspect]
     Active Substance: INFLIXIMAB
     Dosage: 300 MG/BODY/DAY
     Route: 042
     Dates: start: 20161004, end: 20161004
  6. INFLIXIMAB BS FOR I.V. INFUSION100 MG [NK] [Suspect]
     Active Substance: INFLIXIMAB
     Dosage: 200 MG/BODY/DAY
     Route: 042
     Dates: start: 20160712, end: 20160712
  7. KOLBET [Concomitant]
     Active Substance: IGURATIMOD
     Indication: RHEUMATOID ARTHRITIS
     Dosage: 50 MG/DAY
     Dates: start: 20160513
  8. INFLIXIMAB BS FOR I.V. INFUSION100 MG [NK] [Suspect]
     Active Substance: INFLIXIMAB
     Dosage: 300 MG/BODY EVERY 4 WEEKS
     Route: 042
     Dates: start: 20160809, end: 20160809
  9. INFLIXIMAB BS FOR I.V. INFUSION100 MG [NK] [Suspect]
     Active Substance: INFLIXIMAB
     Dosage: 300 MG/BODY/DAY
     Route: 042
     Dates: start: 20160906, end: 20160906
  10. METHOTREXATE. [Concomitant]
     Active Substance: METHOTREXATE
     Indication: RHEUMATOID ARTHRITIS
     Dosage: 6 MG/WEEK
  11. METHOTREXATE. [Concomitant]
     Active Substance: METHOTREXATE
     Dosage: 4 MG/WEEK
     Dates: start: 20161101

REACTIONS (3)
  - Peripheral venous disease [Not Recovered/Not Resolved]
  - Cardiac failure [Not Recovered/Not Resolved]
  - Oedema peripheral [Not Recovered/Not Resolved]

NARRATIVE: CASE EVENT DATE: 20160823
